FAERS Safety Report 10643082 (Version 2)
Quarter: 2014Q4

REPORT INFORMATION
  Report Type: Spontaneous
  Country: DE (occurrence: DE)
  Receive Date: 20141210
  Receipt Date: 20141210
  Transmission Date: 20150529
  Serious: Yes (Hospitalization, Disabling, Other)
  Sender: FDA-Public Use
  Company Number: GXKR2012DE002115

PATIENT
  Sex: Female

DRUGS (9)
  1. IBUFLAM [Suspect]
     Active Substance: IBUPROFEN
     Indication: CARPAL TUNNEL SYNDROME
     Dosage: 600 MG, UNK
     Route: 048
     Dates: start: 201203, end: 201205
  2. IBUPROFEN. [Suspect]
     Active Substance: IBUPROFEN
     Indication: CARPAL TUNNEL SYNDROME
     Dosage: 600 MG, UNK
     Route: 048
     Dates: start: 201203, end: 201206
  3. PREDNISOLON [Concomitant]
     Active Substance: PREDNISOLONE
     Dosage: 50 MG, QW, 2 TIMES
     Route: 014
  4. LIDOCAINE. [Concomitant]
     Active Substance: LIDOCAINE
     Indication: CARPAL TUNNEL SYNDROME
     Dosage: UNK UKN, QW
     Route: 014
     Dates: start: 201204
  5. ANCO [Suspect]
     Active Substance: IBUPROFEN
     Indication: POSTOPERATIVE ANALGESIA
     Dosage: 400 MG, UNK
     Route: 048
     Dates: start: 201205, end: 201206
  6. L-THYROXINE [Concomitant]
     Active Substance: LEVOTHYROXINE
     Indication: AUTOIMMUNE THYROIDITIS
     Dosage: 125 UG, QD
     Route: 048
  7. L-THYROXINE [Concomitant]
     Active Substance: LEVOTHYROXINE
     Dosage: 100 UG, QD
     Route: 048
  8. METAMIZOLE [Concomitant]
     Active Substance: METAMIZOLE
     Indication: POSTOPERATIVE CARE
     Dosage: UNK UKN, UNK
     Route: 048
     Dates: start: 201206
  9. PREDNISOLON [Concomitant]
     Active Substance: PREDNISOLONE
     Dosage: 5 MG, QW
     Route: 014
     Dates: start: 201204

REACTIONS (13)
  - Activities of daily living impaired [Unknown]
  - Skin induration [Recovering/Resolving]
  - Oedema peripheral [Recovering/Resolving]
  - Rash pruritic [Recovering/Resolving]
  - Rash papular [Recovering/Resolving]
  - Eosinophilic fasciitis [Recovering/Resolving]
  - Weight increased [Recovering/Resolving]
  - Joint stiffness [Recovering/Resolving]
  - Mobility decreased [Recovering/Resolving]
  - Insomnia [Unknown]
  - Skin hypertrophy [Recovering/Resolving]
  - Pain [Recovering/Resolving]
  - Alopecia [Recovering/Resolving]

NARRATIVE: CASE EVENT DATE: 201203
